FAERS Safety Report 9255803 (Version 1)
Quarter: 2013Q2

REPORT INFORMATION
  Report Type: Spontaneous
  Country: US (occurrence: US)
  Receive Date: 20130425
  Receipt Date: 20130425
  Transmission Date: 20140414
  Serious: No
  Sender: FDA-Public Use
  Company Number: US-ASTRAZENECA-2013SE24501

PATIENT
  Age: 39 Year
  Sex: Male
  Weight: 86.2 kg

DRUGS (7)
  1. TOPROL-XL [Suspect]
     Indication: ARRHYTHMIA
     Route: 048
     Dates: end: 20130318
  2. TOPROL-XL [Suspect]
     Indication: HYPERTENSION
     Route: 048
     Dates: end: 20130318
  3. TOPROL-XL [Suspect]
     Indication: ARRHYTHMIA
     Route: 048
     Dates: start: 20130318
  4. TOPROL-XL [Suspect]
     Indication: HYPERTENSION
     Route: 048
     Dates: start: 20130318
  5. TOPROL-XL [Suspect]
     Indication: ARRHYTHMIA
     Dosage: GENERIC
     Route: 048
  6. TOPROL-XL [Suspect]
     Indication: HYPERTENSION
     Dosage: GENERIC
     Route: 048
  7. ZANAX [Concomitant]
     Indication: ILL-DEFINED DISORDER
     Dosage: 0.25 PRN
     Route: 048

REACTIONS (10)
  - Mobility decreased [Unknown]
  - Heart rate increased [Recovered/Resolved]
  - Asthenia [Unknown]
  - Dyspnoea [Unknown]
  - Depressed mood [Unknown]
  - Arrhythmia [Unknown]
  - Insomnia [Unknown]
  - Tachycardia [Recovered/Resolved]
  - Off label use [Unknown]
  - Drug effect decreased [Unknown]
